FAERS Safety Report 21117946 (Version 1)
Quarter: 2022Q3

REPORT INFORMATION
  Report Type: Report from Study
  Country: SE (occurrence: SE)
  Receive Date: 20220722
  Receipt Date: 20220722
  Transmission Date: 20221026
  Serious: Yes (Other)
  Sender: FDA-Public Use
  Company Number: SE-GLAXOSMITHKLINE-SE2022GSK104161

PATIENT
  Age: 75 Year
  Sex: Male

DRUGS (6)
  1. ASPIRIN [Suspect]
     Active Substance: ASPIRIN
     Indication: Product used for unknown indication
     Dosage: UNK
     Route: 065
  2. CELECOXIB [Suspect]
     Active Substance: CELECOXIB
     Indication: Product used for unknown indication
     Dosage: UNK
     Route: 065
  3. GEMFIBROZIL [Suspect]
     Active Substance: GEMFIBROZIL
     Indication: Product used for unknown indication
     Dosage: 1.2 GRAM
     Route: 065
  4. INDAPAMIDE [Suspect]
     Active Substance: INDAPAMIDE
     Indication: Product used for unknown indication
     Dosage: 2.5 MILLIGRAM, ONCE A DAY
     Route: 065
  5. QUINAPRIL [Suspect]
     Active Substance: QUINAPRIL
     Indication: Product used for unknown indication
     Dosage: UNK
     Route: 065
  6. SIMVASTATIN [Suspect]
     Active Substance: SIMVASTATIN
     Indication: Product used for unknown indication
     Dosage: 80 MILLIGRAM
     Route: 065

REACTIONS (2)
  - Acute kidney injury [Unknown]
  - Rhabdomyolysis [Unknown]
